FAERS Safety Report 8665277 (Version 3)
Quarter: 2013Q4

REPORT INFORMATION
  Report Type: Report from Study
  Country: BG (occurrence: BG)
  Receive Date: 20120716
  Receipt Date: 20131015
  Transmission Date: 20140711
  Serious: Yes (Death, Life-Threatening, Hospitalization)
  Sender: FDA-Public Use
  Company Number: BG-CELGENEUS-022-21880-12070804

PATIENT
  Age: 78 Year
  Sex: Female
  Weight: 70 kg

DRUGS (14)
  1. REVLIMID [Suspect]
     Indication: PLASMA CELL MYELOMA
     Dosage: 25 MILLIGRAM
     Route: 048
     Dates: start: 20110829, end: 20110918
  2. REVLIMID [Suspect]
     Dosage: 25 MILLIGRAM
     Route: 048
     Dates: start: 20110926, end: 20111007
  3. REVLIMID [Suspect]
     Dosage: 15 MILLIGRAM
     Route: 048
     Dates: start: 20111024, end: 20111114
  4. REVLIMID [Suspect]
     Dosage: 15 MILLIGRAM
     Route: 048
     Dates: start: 20111128, end: 20111218
  5. REVLIMID [Suspect]
     Dosage: 10 MILLIGRAM
     Route: 048
     Dates: start: 20120221, end: 20120312
  6. REVLIMID [Suspect]
     Dosage: 10 MILLIGRAM
     Route: 048
     Dates: start: 20120614, end: 20120625
  7. DEXAMETHASONE [Suspect]
     Indication: PLASMA CELL MYELOMA
     Dosage: 40 MILLIGRAM
     Route: 065
     Dates: start: 20110829, end: 20110919
  8. DEXAMETHASONE [Suspect]
     Dosage: 40 MILLIGRAM
     Route: 065
     Dates: start: 20120221, end: 20120313
  9. DEXAMETHASONE [Suspect]
     Dosage: 40 MILLIGRAM
     Route: 065
     Dates: start: 20120614, end: 20120621
  10. ACETYSAL [Concomitant]
     Indication: ANTICOAGULANT THERAPY
     Dosage: 100 MILLIGRAM
     Route: 048
     Dates: start: 20110828
  11. ACETYSAL [Concomitant]
     Indication: ANTIPLATELET THERAPY
     Route: 065
  12. EPREX [Concomitant]
     Indication: ANAEMIA
     Dosage: 1428.5714 IU (INTERNATIONAL UNIT)
     Route: 058
     Dates: start: 20120221, end: 20120702
  13. LANSOPROL [Concomitant]
     Indication: GASTRITIS PROPHYLAXIS
     Dosage: 15 MILLIGRAM
     Route: 048
     Dates: start: 20110828
  14. SORBIFER DURULESFEROUS SULFATE [Concomitant]
     Indication: ANAEMIA
     Dosage: 100 MILLIGRAM
     Route: 048
     Dates: start: 20120221, end: 20120702

REACTIONS (1)
  - Renal failure acute [Fatal]
